FAERS Safety Report 10191199 (Version 2)
Quarter: 2014Q2

REPORT INFORMATION
  Report Type: Spontaneous
  Country: JP (occurrence: JP)
  Receive Date: 20140523
  Receipt Date: 20140529
  Transmission Date: 20141212
  Serious: Yes (Hospitalization)
  Sender: FDA-Public Use
  Company Number: JP-ASTRAZENECA-2014SE34684

PATIENT
  Age: 68 Year
  Sex: Female

DRUGS (3)
  1. TENORMIN [Suspect]
     Dosage: 50
     Route: 048
     Dates: start: 201305, end: 201306
  2. MERCAZOLE [Suspect]
     Dosage: DOSE UNKNOWN
     Route: 065
  3. FINIBAX [Concomitant]
     Dosage: DOSE UNKNOWN
     Route: 065

REACTIONS (1)
  - Pancytopenia [Unknown]
